FAERS Safety Report 20447444 (Version 6)
Quarter: 2022Q2

REPORT INFORMATION
  Report Type: Spontaneous
  Country: US (occurrence: US)
  Receive Date: 20220209
  Receipt Date: 20220519
  Transmission Date: 20220721
  Serious: Yes (Other)
  Sender: FDA-Public Use
  Company Number: US-GLAXOSMITHKLINE-US2022AMR018935

PATIENT

DRUGS (4)
  1. ZEJULA [Suspect]
     Active Substance: NIRAPARIB
     Indication: Ovarian cancer
     Dosage: 300 MG, QD
     Route: 048
     Dates: start: 20220125
  2. ZEJULA [Suspect]
     Active Substance: NIRAPARIB
     Dosage: 200 MG, QD
     Route: 048
     Dates: start: 20220202
  3. COVID 19 BOOSTER [Concomitant]
     Indication: Product used for unknown indication
     Dosage: 01,UNK
  4. COVID 19 BOOSTER [Concomitant]
     Dosage: 02,UNK
     Dates: start: 20220501

REACTIONS (12)
  - Recurrent cancer [Not Recovered/Not Resolved]
  - Nausea [Not Recovered/Not Resolved]
  - Decreased appetite [Not Recovered/Not Resolved]
  - Blood pressure increased [Recovering/Resolving]
  - Headache [Not Recovered/Not Resolved]
  - Tinnitus [Recovering/Resolving]
  - Hypertension [Recovered/Resolved]
  - Gastroenteritis viral [Recovering/Resolving]
  - Abdominal pain [Not Recovered/Not Resolved]
  - Herpes zoster [Recovering/Resolving]
  - Carbohydrate antigen 125 increased [Not Recovered/Not Resolved]
  - Product dose omission issue [Recovered/Resolved]

NARRATIVE: CASE EVENT DATE: 20220409
